FAERS Safety Report 5307676-5 (Version None)
Quarter: 2007Q2

REPORT INFORMATION
  Report Type: 
  Country: None (occurrence: None)
  Receive Date: 20070419
  Receipt Date: 20070404
  Transmission Date: 20071010
  Serious: Yes (Other)
  Sender: FDA-Public Use
  Company Number: 6031797

PATIENT
  Sex: Female

DRUGS (2)
  1. PRAVASTATIN [Suspect]
     Indication: DRUG USE FOR UNKNOWN INDICATION
     Dosage: 10,000 MG (10 MG, 1 IN 1 D), 20,000 (20 MG, 1 IN 1 D)
     Route: 048
     Dates: start: 20061101
  2. PRAVASTATIN [Suspect]
     Indication: DRUG USE FOR UNKNOWN INDICATION
     Dosage: 10,000 MG (10 MG, 1 IN 1 D), 20,000 (20 MG, 1 IN 1 D)
     Route: 048
     Dates: start: 20070201

REACTIONS (3)
  - LARYNGEAL OEDEMA [None]
  - PARAESTHESIA ORAL [None]
  - PERICARDIAL EFFUSION [None]
